FAERS Safety Report 16285258 (Version 1)
Quarter: 2019Q2

REPORT INFORMATION
  Report Type: Spontaneous
  Country: US (occurrence: US)
  Receive Date: 20190506
  Receipt Date: 20190506
  Transmission Date: 20190711
  Serious: No
  Sender: FDA-Public Use
  Company Number: None

PATIENT
  Age: 48 Year
  Sex: Male
  Weight: 115.65 kg

DRUGS (1)
  1. DOXYCYCLINE HYCLATE 100 MG CAP [Suspect]
     Active Substance: DOXYCYCLINE HYCLATE
     Indication: PNEUMONIA
     Dosage: ?          QUANTITY:20 CAPSULE(S);?
     Route: 048
     Dates: start: 20190426, end: 20190501

REACTIONS (3)
  - Oral candidiasis [None]
  - Pollakiuria [None]
  - Diplopia [None]

NARRATIVE: CASE EVENT DATE: 20190502
